FAERS Safety Report 19897045 (Version 1)
Quarter: 2021Q3

REPORT INFORMATION
  Report Type: Other
  Country: US (occurrence: US)
  Receive Date: 20210930
  Receipt Date: 20210930
  Transmission Date: 20211014
  Serious: Yes (Other)
  Sender: FDA-Public Use
  Company Number: US-ROCHE-2906944

PATIENT
  Age: 79 Year
  Sex: Female

DRUGS (3)
  1. OMALIZUMAB. [Suspect]
     Active Substance: OMALIZUMAB
     Indication: NASAL POLYPS
  2. OMALIZUMAB. [Suspect]
     Active Substance: OMALIZUMAB
     Indication: RHINITIS ALLERGIC
  3. OMALIZUMAB. [Suspect]
     Active Substance: OMALIZUMAB
     Indication: ASTHMA
     Route: 065

REACTIONS (2)
  - Eosinophilic pneumonia [Unknown]
  - Pulmonary mass [Recovered/Resolved]
